FAERS Safety Report 23841379 (Version 1)
Quarter: 2024Q2

REPORT INFORMATION
  Report Type: Spontaneous
  Country: US (occurrence: None)
  Receive Date: 20240509
  Receipt Date: 20240509
  Transmission Date: 20240716
  Serious: Yes (Other)
  Sender: FDA-Public Use
  Company Number: None

PATIENT
  Age: 18 Year
  Sex: Male
  Weight: 68.8 kg

DRUGS (1)
  1. CABENUVA [Suspect]
     Active Substance: CABOTEGRAVIR\RILPIVIRINE
     Indication: HIV infection
     Dosage: OTHER STRENGTH : 600-900 MG/3ML;?OTHER FREQUENCY : EVERY 2 MONTHS;?
     Route: 030
     Dates: start: 20240103, end: 20240506

REACTIONS (6)
  - Dyspnoea [None]
  - Cough [None]
  - Abdominal pain [None]
  - Abdominal pain [None]
  - Wheezing [None]
  - Feeling hot [None]

NARRATIVE: CASE EVENT DATE: 20240506
